FAERS Safety Report 4444690-6 (Version None)
Quarter: 2004Q3

REPORT INFORMATION
  Report Type: 
  Country: None (occurrence: None)
  Receive Date: 20040902
  Receipt Date: 20040818
  Transmission Date: 20050211
  Serious: Yes (Hospitalization, Disabling)
  Sender: FDA-Public Use
  Company Number: 1-11781952

PATIENT
  Sex: Male

DRUGS (1)
  1. LOPROX [Suspect]
     Dosage: TOPICAL CUTANEOUS INTERMITTENT USE 1998 - 2004
     Route: 061

REACTIONS (3)
  - BENIGN LUNG NEOPLASM [None]
  - FOREIGN BODY TRAUMA [None]
  - SCAR [None]
